FAERS Safety Report 6152882-3 (Version None)
Quarter: 2009Q2

REPORT INFORMATION
  Report Type: 
  Country: None (occurrence: None)
  Receive Date: 20090413
  Receipt Date: 20090403
  Transmission Date: 20091009
  Serious: Yes (Other)
  Sender: FDA-Public Use
  Company Number: PHHY2009BR12878

PATIENT
  Sex: Male
  Weight: 66 kg

DRUGS (4)
  1. EXFORGE [Suspect]
     Indication: BLOOD PRESSURE INADEQUATELY CONTROLLED
     Dosage: 1 TABLET A DAY
     Route: 048
     Dates: start: 20080801
  2. CLOPIDOGREL [Concomitant]
     Indication: PLATELET DISORDER
     Dosage: 1 TABLET/LUNCH
     Route: 048
     Dates: start: 20080801
  3. SIMVASTATIN [Concomitant]
     Indication: BLOOD CHOLESTEROL ABNORMAL
     Dosage: 1 TABLET/NIGHT
     Route: 048
     Dates: start: 20080801
  4. SOMALGIN [Concomitant]
     Indication: PLATELET DISORDER
     Dosage: UNK
     Route: 048
     Dates: start: 20080801

REACTIONS (2)
  - EXCORIATION [None]
  - FALL [None]
